FAERS Safety Report 19605197 (Version 3)
Quarter: 2022Q1

REPORT INFORMATION
  Report Type: Spontaneous
  Country: US (occurrence: US)
  Receive Date: 20210723
  Receipt Date: 20220221
  Transmission Date: 20220424
  Serious: Yes (Other)
  Sender: FDA-Public Use
  Company Number: US-GILEAD-2021-0541716

PATIENT
  Age: 56 Year
  Sex: Male
  Weight: 77.098 kg

DRUGS (43)
  1. VIREAD [Suspect]
     Active Substance: TENOFOVIR DISOPROXIL FUMARATE
     Indication: HIV infection
     Dosage: UNK
     Route: 048
     Dates: start: 2006
  2. ATRIPLA [Suspect]
     Active Substance: EFAVIRENZ\EMTRICITABINE\TENOFOVIR DISOPROXIL FUMARATE
     Indication: HIV infection
     Dosage: UNK
     Route: 048
     Dates: start: 2006
  3. ATRIPLA [Suspect]
     Active Substance: EFAVIRENZ\EMTRICITABINE\TENOFOVIR DISOPROXIL FUMARATE
     Dosage: UNK
     Route: 048
     Dates: start: 20110119, end: 20140418
  4. ATRIPLA [Suspect]
     Active Substance: EFAVIRENZ\EMTRICITABINE\TENOFOVIR DISOPROXIL FUMARATE
     Dosage: UNK
     Route: 048
     Dates: start: 20140424, end: 20141002
  5. ATRIPLA [Suspect]
     Active Substance: EFAVIRENZ\EMTRICITABINE\TENOFOVIR DISOPROXIL FUMARATE
     Dosage: UNK
     Route: 048
     Dates: start: 20141003, end: 20160302
  6. ATRIPLA [Suspect]
     Active Substance: EFAVIRENZ\EMTRICITABINE\TENOFOVIR DISOPROXIL FUMARATE
     Dosage: UNK
     Route: 048
     Dates: start: 20160412, end: 20180513
  7. ATRIPLA [Suspect]
     Active Substance: EFAVIRENZ\EMTRICITABINE\TENOFOVIR DISOPROXIL FUMARATE
     Dosage: UNK
     Route: 048
     Dates: start: 20180513, end: 20180622
  8. COMBIVIR [Concomitant]
     Active Substance: LAMIVUDINE\ZIDOVUDINE
  9. JULUCA [Concomitant]
     Active Substance: DOLUTEGRAVIR SODIUM\RILPIVIRINE HYDROCHLORIDE
  10. VIRAMUNE [Concomitant]
     Active Substance: NEVIRAPINE
  11. ACYCLOVIR [Concomitant]
     Active Substance: ACYCLOVIR
  12. AMBIEN [Concomitant]
     Active Substance: ZOLPIDEM TARTRATE
  13. AMOXICILLIN [Concomitant]
     Active Substance: AMOXICILLIN
  14. ANTIPYRINE [Concomitant]
     Active Substance: ANTIPYRINE
  15. AZITHROMYCIN [Concomitant]
     Active Substance: AZITHROMYCIN
  16. BUSPIRONE [Concomitant]
     Active Substance: BUSPIRONE HYDROCHLORIDE
  17. CARVEDILOL [Concomitant]
     Active Substance: CARVEDILOL
  18. CIPROFLOXACIN [Concomitant]
     Active Substance: CIPROFLOXACIN
  19. CLOPIDOGREL [Concomitant]
     Active Substance: CLOPIDOGREL BISULFATE
  20. TESTOSTERONE [Concomitant]
     Active Substance: TESTOSTERONE
  21. DOVATO [Concomitant]
     Active Substance: DOLUTEGRAVIR SODIUM\LAMIVUDINE
  22. DOXYCYCLINE [Concomitant]
     Active Substance: DOXYCYCLINE
  23. DYMISTA [Concomitant]
     Active Substance: AZELASTINE HYDROCHLORIDE\FLUTICASONE PROPIONATE
  24. ESCITALOPRAM [Concomitant]
     Active Substance: ESCITALOPRAM OXALATE
  25. FETZIMA [Concomitant]
     Active Substance: LEVOMILNACIPRAN HYDROCHLORIDE
  26. FLUTICASONE [Concomitant]
     Active Substance: FLUTICASONE
  27. GOLYTELY [Concomitant]
     Active Substance: POLYETHYLENE GLYCOL 3350\POTASSIUM CHLORIDE\SODIUM BICARBONATE\SODIUM CHLORIDE\SODIUM SULFATE
  28. HYDROCODONE [Concomitant]
     Active Substance: HYDROCODONE
  29. IBUPROFEN [Concomitant]
     Active Substance: IBUPROFEN
  30. LEVOFLOXACIN [Concomitant]
     Active Substance: LEVOFLOXACIN
  31. LORAZEPAM [Concomitant]
     Active Substance: LORAZEPAM
  32. LOSARTAN [Concomitant]
     Active Substance: LOSARTAN
  33. NABUMETONE [Concomitant]
     Active Substance: NABUMETONE
  34. NAPROXEN [Concomitant]
     Active Substance: NAPROXEN
  35. NITROGLYCERIN [Concomitant]
     Active Substance: NITROGLYCERIN
  36. OMEGA-3 FATTY ACIDS [Concomitant]
     Active Substance: OMEGA-3 FATTY ACIDS
  37. ROSUVASTATIN [Concomitant]
     Active Substance: ROSUVASTATIN
  38. SULFAMETHOXAZOLE [Concomitant]
     Active Substance: SULFAMETHOXAZOLE
  39. TERBINAFINE [Concomitant]
     Active Substance: TERBINAFINE
  40. TESTIM [Concomitant]
     Active Substance: TESTOSTERONE
  41. TESTOSTERONE [Concomitant]
     Active Substance: TESTOSTERONE
  42. VIAGRA [Concomitant]
     Active Substance: SILDENAFIL CITRATE
  43. ZOLPIDEM [Concomitant]
     Active Substance: ZOLPIDEM TARTRATE

REACTIONS (9)
  - Osteoporosis [Not Recovered/Not Resolved]
  - Tibia fracture [Unknown]
  - Bone density decreased [Unknown]
  - Osteopenia [Unknown]
  - Pain [Not Recovered/Not Resolved]
  - Emotional distress [Not Recovered/Not Resolved]
  - Anxiety [Not Recovered/Not Resolved]
  - Anhedonia [Not Recovered/Not Resolved]
  - Renal impairment [Not Recovered/Not Resolved]

NARRATIVE: CASE EVENT DATE: 20190317
